FAERS Safety Report 12768800 (Version 1)
Quarter: 2016Q3

REPORT INFORMATION
  Report Type: Spontaneous
  Country: US (occurrence: US)
  Receive Date: 20160921
  Receipt Date: 20160921
  Transmission Date: 20161109
  Serious: No
  Sender: FDA-Public Use
  Company Number: US-JAZZ-2016-US-010237

PATIENT
  Sex: Female

DRUGS (17)
  1. XYREM [Suspect]
     Active Substance: SODIUM OXYBATE
     Dosage: 3.5 G, BID
     Route: 048
     Dates: start: 201206, end: 201605
  2. ALBUTEROL SULFATE. [Concomitant]
     Active Substance: ALBUTEROL SULFATE
  3. ASPIRIN. [Concomitant]
     Active Substance: ASPIRIN
  4. PROMETHAZINE - CODEINE [Concomitant]
     Active Substance: CODEINE\PROMETHAZINE
  5. LASIX [Concomitant]
     Active Substance: FUROSEMIDE
  6. KLOR-CON M10 [Concomitant]
     Active Substance: POTASSIUM CHLORIDE
  7. GLUCOSAMINE [Concomitant]
     Active Substance: GLUCOSAMINE
  8. MULTIVITAMIN WITH MINERALS [Concomitant]
     Active Substance: MINERALS\VITAMINS
  9. VENLAFAXINE [Concomitant]
     Active Substance: VENLAFAXINE HYDROCHLORIDE
  10. CLOPIDOGREL [Concomitant]
     Active Substance: CLOPIDOGREL BISULFATE
  11. XYREM [Suspect]
     Active Substance: SODIUM OXYBATE
     Indication: NARCOLEPSY
     Dosage: 2.25 G, BID
     Route: 048
     Dates: start: 200709, end: 200711
  12. ZOCOR [Concomitant]
     Active Substance: SIMVASTATIN
  13. LISINOPRIL. [Concomitant]
     Active Substance: LISINOPRIL
  14. VIVACTIL [Concomitant]
     Active Substance: PROTRIPTYLINE HYDROCHLORIDE
  15. XYREM [Suspect]
     Active Substance: SODIUM OXYBATE
     Indication: CATAPLEXY
     Dosage: DOSE ADJUSTMENTS
     Route: 048
     Dates: start: 200711, end: 201206
  16. AMARYL [Concomitant]
     Active Substance: GLIMEPIRIDE
  17. POTASSIUM CL [Concomitant]
     Active Substance: POTASSIUM CHLORIDE

REACTIONS (3)
  - Activities of daily living impaired [Not Recovered/Not Resolved]
  - Asthenia [Not Recovered/Not Resolved]
  - Fatigue [Not Recovered/Not Resolved]

NARRATIVE: CASE EVENT DATE: 2016
